FAERS Safety Report 14411280 (Version 1)
Quarter: 2018Q1

REPORT INFORMATION
  Report Type: Spontaneous
  Country: US (occurrence: US)
  Receive Date: 20180117
  Receipt Date: 20180117
  Transmission Date: 20180509
  Serious: Yes (Hospitalization)
  Sender: FDA-Public Use
  Company Number: None

PATIENT
  Age: 65 Year
  Sex: Male

DRUGS (1)
  1. BELEODAQ [Suspect]
     Active Substance: BELINOSTAT
     Indication: PERIPHERAL T-CELL LYMPHOMA UNSPECIFIED
     Dosage: END OF DATE USE OMITTED
     Route: 048
     Dates: start: 20171211

REACTIONS (2)
  - Hepatic enzyme increased [None]
  - Platelet count decreased [None]

NARRATIVE: CASE EVENT DATE: 20180115
